FAERS Safety Report 9084201 (Version 1)
Quarter: 2013Q1

REPORT INFORMATION
  Report Type: Spontaneous
  Country: US (occurrence: US)
  Receive Date: 20130131
  Receipt Date: 20130131
  Transmission Date: 20140127
  Serious: No
  Sender: FDA-Public Use
  Company Number: US-ABBOTT-12P-163-0995867-00

PATIENT
  Sex: Female
  Weight: 97.61 kg

DRUGS (5)
  1. HUMIRA [Suspect]
     Indication: ANKYLOSING SPONDYLITIS
     Dates: start: 201208
  2. PLAQUENIL S [Concomitant]
     Indication: ANKYLOSING SPONDYLITIS
  3. PREDNISONE [Concomitant]
     Indication: ANKYLOSING SPONDYLITIS
  4. TOPOMAX [Concomitant]
     Indication: PRODUCT USED FOR UNKNOWN INDICATION
  5. AMITRIPTYLINE HCL [Concomitant]
     Indication: SLEEP DISORDER

REACTIONS (3)
  - Incorrect storage of drug [Unknown]
  - Poor quality drug administered [Unknown]
  - Pain [Not Recovered/Not Resolved]
